FAERS Safety Report 6928043-4 (Version None)
Quarter: 2010Q3

REPORT INFORMATION
  Report Type: 
  Country: None (occurrence: None)
  Receive Date: 20100816
  Receipt Date: 20100816
  Transmission Date: 20110219
  Serious: Yes (Disabling, Other)
  Sender: FDA-Public Use
  Company Number: None

PATIENT
  Age: 72 Year
  Sex: Male
  Weight: 74.8435 kg

DRUGS (2)
  1. LEVAQUIN [Suspect]
     Indication: COUGH
     Dosage: 500MG 1X / DAY PO
     Route: 048
     Dates: start: 20100617, end: 20100623
  2. LEVAQUIN [Suspect]
     Indication: LUNG DISORDER
     Dosage: 500MG 1X / DAY PO
     Route: 048
     Dates: start: 20100617, end: 20100623

REACTIONS (20)
  - ARTHRALGIA [None]
  - ASTHENIA [None]
  - BURNING SENSATION [None]
  - CONDITION AGGRAVATED [None]
  - DIZZINESS [None]
  - DRUG INEFFECTIVE [None]
  - DRY MOUTH [None]
  - ERYTHEMA [None]
  - FEELING ABNORMAL [None]
  - IMPAIRED HEALING [None]
  - JOINT RANGE OF MOTION DECREASED [None]
  - LUNG INFECTION [None]
  - MEMORY IMPAIRMENT [None]
  - MIDDLE INSOMNIA [None]
  - OEDEMA PERIPHERAL [None]
  - PAIN IN EXTREMITY [None]
  - PRURITUS [None]
  - RESPIRATORY DISORDER [None]
  - SKIN ULCER [None]
  - TENDON PAIN [None]
